FAERS Safety Report 7216380-8 (Version None)
Quarter: 2011Q1

REPORT INFORMATION
  Report Type: 
  Country: None (occurrence: None)
  Receive Date: 20110107
  Receipt Date: 20110104
  Transmission Date: 20110831
  Serious: Yes (Life-Threatening, Hospitalization)
  Sender: FDA-Public Use
  Company Number: GR-B.I. PHARMACEUTICALS,INC./RIDGEFIELD-2011-DE-00072DE

PATIENT
  Sex: Male
  Weight: 100 kg

DRUGS (5)
  1. ONBREZ [Concomitant]
     Indication: CHRONIC OBSTRUCTIVE PULMONARY DISEASE
     Dosage: 150 NR
     Route: 048
     Dates: start: 20101118
  2. CO APROVEL [Concomitant]
     Indication: HYPERTENSION
     Dosage: STRENGTH AND DAILY DOSE: 300/12,5
     Route: 048
     Dates: start: 20100710
  3. TIOTROPIUM BROMIDE [Suspect]
     Indication: CHRONIC OBSTRUCTIVE PULMONARY DISEASE
     Dosage: 18 MCG
     Route: 055
     Dates: start: 20101217
  4. SPIRIVA [Concomitant]
     Indication: CHRONIC OBSTRUCTIVE PULMONARY DISEASE
     Dosage: RT:18
     Route: 048
     Dates: start: 20101118
  5. FLIXOTIDE [Concomitant]
     Indication: CHRONIC OBSTRUCTIVE PULMONARY DISEASE
     Dosage: 1000 NR
     Route: 048
     Dates: start: 20101118

REACTIONS (2)
  - HAEMOPTYSIS [None]
  - PNEUMONIA [None]
